FAERS Safety Report 11427146 (Version 2)
Quarter: 2015Q3

REPORT INFORMATION
  Report Type: Spontaneous
  Country: JP (occurrence: JP)
  Receive Date: 20150827
  Receipt Date: 20150910
  Transmission Date: 20151125
  Serious: Yes (Life-Threatening)
  Sender: FDA-Public Use
  Company Number: JP-HOSPIRA-2982245

PATIENT
  Age: 76 Year
  Sex: Male
  Weight: 63.9 kg

DRUGS (40)
  1. BROTIZOLAM [Concomitant]
     Active Substance: BROTIZOLAM
     Indication: INSOMNIA
     Dosage: 2 TABS
     Route: 048
     Dates: start: 20150203, end: 20150204
  2. GEMCITABINE HYDROCHLORIDE. [Suspect]
     Active Substance: GEMCITABINE HYDROCHLORIDE
     Indication: INTRADUCTAL PAPILLARY MUCINOUS NEOPLASM
     Route: 042
     Dates: start: 20150317
  3. CANDESARTAN CILEXETIL. [Concomitant]
     Active Substance: CANDESARTAN CILEXETIL
     Indication: HYPERTENSION
     Route: 048
     Dates: start: 20150403, end: 20150409
  4. GEMCITABINE HYDROCHLORIDE. [Suspect]
     Active Substance: GEMCITABINE HYDROCHLORIDE
     Indication: INTRADUCTAL PAPILLARY MUCINOUS NEOPLASM
     Route: 042
     Dates: start: 20150224
  5. GEMCITABINE HYDROCHLORIDE. [Suspect]
     Active Substance: GEMCITABINE HYDROCHLORIDE
     Indication: INTRADUCTAL PAPILLARY MUCINOUS NEOPLASM
     Route: 042
     Dates: start: 20150331
  6. DAIKENCHUTO [Concomitant]
     Active Substance: HERBALS
     Indication: CONSTIPATION
     Dosage: 6 PACKS
     Route: 048
     Dates: start: 20150206, end: 20150331
  7. DAIKENCHUTO [Concomitant]
     Active Substance: HERBALS
     Indication: CONSTIPATION
     Dosage: 6 PACKS
     Route: 048
     Dates: start: 20150403, end: 20150409
  8. BROTIZOLAM [Concomitant]
     Active Substance: BROTIZOLAM
     Indication: INSOMNIA
     Dosage: 2 TABS
     Route: 048
     Dates: start: 20150206, end: 20150402
  9. NIFEDIPINE. [Concomitant]
     Active Substance: NIFEDIPINE
     Indication: HYPERTENSION
     Dosage: 3 TABS
     Route: 048
     Dates: start: 20150206, end: 20150323
  10. OMEPRAZOLE. [Concomitant]
     Active Substance: OMEPRAZOLE
     Indication: GASTRIC ULCER
     Dosage: 2 TABS
     Route: 048
     Dates: start: 20150202
  11. MAGNESIUM OXIDE. [Concomitant]
     Active Substance: MAGNESIUM OXIDE
     Indication: CONSTIPATION
     Dosage: 6 TABS
     Route: 048
     Dates: start: 20150202
  12. CANDESARTAN CILEXETIL. [Concomitant]
     Active Substance: CANDESARTAN CILEXETIL
     Indication: HYPERTENSION
     Route: 048
     Dates: start: 20150206, end: 20150302
  13. CANDESARTAN CILEXETIL. [Concomitant]
     Active Substance: CANDESARTAN CILEXETIL
     Indication: HYPERTENSION
     Route: 048
     Dates: start: 20150331
  14. OMEPRAZOLE. [Concomitant]
     Active Substance: OMEPRAZOLE
     Indication: GASTRIC ULCER
     Route: 041
     Dates: start: 20150408
  15. OMEPRAZOLE. [Concomitant]
     Active Substance: OMEPRAZOLE
     Indication: GASTRIC ULCER
     Route: 041
     Dates: start: 20150408, end: 20150414
  16. DAIKENCHUTO [Concomitant]
     Active Substance: HERBALS
     Indication: CONSTIPATION
     Dosage: 6 PACKS
     Route: 048
     Dates: start: 20150412, end: 20150416
  17. MAGNESIUM OXIDE. [Concomitant]
     Active Substance: MAGNESIUM OXIDE
     Indication: CONSTIPATION
     Dosage: 9 TABS
     Route: 048
     Dates: start: 20150206, end: 20150219
  18. GLIMEPIRIDE. [Concomitant]
     Active Substance: GLIMEPIRIDE
     Indication: DIABETES MELLITUS
     Dosage: 2 TABS
     Route: 048
     Dates: start: 20150202, end: 20150204
  19. GLIMEPIRIDE. [Concomitant]
     Active Substance: GLIMEPIRIDE
     Indication: DIABETES MELLITUS
     Dosage: 1 TAB
     Route: 048
     Dates: start: 20150213, end: 20150331
  20. BROTIZOLAM [Concomitant]
     Active Substance: BROTIZOLAM
     Indication: INSOMNIA
     Dosage: 3 TABS
     Route: 048
     Dates: start: 20150403, end: 20150407
  21. OMEPRAZOLE. [Concomitant]
     Active Substance: OMEPRAZOLE
     Indication: GASTRIC ULCER
     Dosage: 1 TAB
     Route: 048
     Dates: start: 20150203, end: 20150204
  22. DAIKENCHUTO [Concomitant]
     Active Substance: HERBALS
     Indication: CONSTIPATION
     Dosage: 6 PACKS
     Route: 048
     Dates: start: 20150203, end: 20150204
  23. MAGNESIUM OXIDE. [Concomitant]
     Active Substance: MAGNESIUM OXIDE
     Indication: CONSTIPATION
     Dosage: 9 TABS
     Route: 048
     Dates: start: 20150331
  24. MAGNESIUM OXIDE. [Concomitant]
     Active Substance: MAGNESIUM OXIDE
     Indication: CONSTIPATION
     Dosage: 6 TABS
     Route: 048
     Dates: start: 20150403, end: 20150409
  25. BROTIZOLAM [Concomitant]
     Active Substance: BROTIZOLAM
     Indication: INSOMNIA
     Dosage: 2 TABS
     Route: 048
     Dates: start: 20150408, end: 20150409
  26. NIFEDIPINE. [Concomitant]
     Active Substance: NIFEDIPINE
     Indication: HYPERTENSION
     Dosage: 3 TABS
     Route: 048
     Dates: start: 20150331
  27. NIFEDIPINE. [Concomitant]
     Active Substance: NIFEDIPINE
     Indication: HYPERTENSION
     Dosage: 3 TABS
     Route: 048
     Dates: start: 20150403, end: 20150409
  28. OMEPRAZOLE. [Concomitant]
     Active Substance: OMEPRAZOLE
     Indication: GASTRIC ULCER
     Dosage: 1 TAB
     Route: 048
     Dates: start: 20150206, end: 20150331
  29. DAIKENCHUTO [Concomitant]
     Active Substance: HERBALS
     Indication: CONSTIPATION
     Dosage: 18 PACKS
     Route: 048
     Dates: start: 20150202
  30. BROTIZOLAM [Concomitant]
     Active Substance: BROTIZOLAM
     Indication: INSOMNIA
     Dosage: 2 TABS
     Route: 048
     Dates: start: 20150408, end: 20150409
  31. GEMCITABINE HYDROCHLORIDE. [Suspect]
     Active Substance: GEMCITABINE HYDROCHLORIDE
     Indication: INTRADUCTAL PAPILLARY MUCINOUS NEOPLASM
     Route: 042
     Dates: start: 20150203
  32. GEMCITABINE HYDROCHLORIDE. [Suspect]
     Active Substance: GEMCITABINE HYDROCHLORIDE
     Indication: INTRADUCTAL PAPILLARY MUCINOUS NEOPLASM
     Route: 042
     Dates: start: 20150210
  33. GEMCITABINE HYDROCHLORIDE. [Suspect]
     Active Substance: GEMCITABINE HYDROCHLORIDE
     Indication: INTRADUCTAL PAPILLARY MUCINOUS NEOPLASM
     Route: 042
     Dates: start: 20150303
  34. DAIKENCHUTO [Concomitant]
     Active Substance: HERBALS
     Indication: CONSTIPATION
     Dosage: 6 PACKS
     Route: 048
     Dates: start: 20150201
  35. GLIMEPIRIDE. [Concomitant]
     Active Substance: GLIMEPIRIDE
     Indication: DIABETES MELLITUS
     Dosage: 2 TABS
     Route: 048
     Dates: start: 20150206, end: 20150212
  36. GLIMEPIRIDE. [Concomitant]
     Active Substance: GLIMEPIRIDE
     Indication: DIABETES MELLITUS
     Dosage: 1 TAB
     Route: 048
     Dates: start: 20150403, end: 20150409
  37. NIFEDIPINE. [Concomitant]
     Active Substance: NIFEDIPINE
     Indication: HYPERTENSION
     Dosage: 3 TABS
     Route: 048
     Dates: start: 20150202, end: 20150204
  38. CANDESARTAN CILEXETIL. [Concomitant]
     Active Substance: CANDESARTAN CILEXETIL
     Indication: HYPERTENSION
     Route: 048
     Dates: start: 20150201, end: 20150204
  39. OMEPRAZOLE. [Concomitant]
     Active Substance: OMEPRAZOLE
     Indication: GASTRIC ULCER
     Route: 048
     Dates: start: 20150201
  40. OMEPRAZOLE. [Concomitant]
     Active Substance: OMEPRAZOLE
     Indication: GASTRIC ULCER
     Dosage: 1 TAB
     Route: 048
     Dates: start: 20150403, end: 20150409

REACTIONS (1)
  - Lung disorder [Unknown]

NARRATIVE: CASE EVENT DATE: 20150407
